FAERS Safety Report 7874722-4 (Version None)
Quarter: 2011Q4

REPORT INFORMATION
  Report Type: 
  Country: None (occurrence: None)
  Receive Date: 20111031
  Receipt Date: 20111024
  Transmission Date: 20120403
  Serious: No
  Sender: FDA-Public Use
  Company Number: US-PFIZER INC-2011258486

PATIENT
  Sex: Female
  Weight: 63.492 kg

DRUGS (3)
  1. CELEBREX [Suspect]
     Indication: PERIARTHRITIS
     Dosage: 200 MG, 1X/DAY
     Route: 048
     Dates: start: 20110823, end: 20110831
  2. EVISTA [Concomitant]
     Indication: BONE DENSITY ABNORMAL
     Dosage: UNK
  3. CORTISONE [Concomitant]
     Dosage: UNK
     Dates: start: 20110822

REACTIONS (3)
  - RASH [None]
  - SWELLING [None]
  - HYPERSENSITIVITY [None]
